FAERS Safety Report 16551748 (Version 1)
Quarter: 2019Q3

REPORT INFORMATION
  Report Type: Spontaneous
  Country: NL (occurrence: NL)
  Receive Date: 20190710
  Receipt Date: 20190710
  Transmission Date: 20191004
  Serious: Yes (Hospitalization)
  Sender: FDA-Public Use
  Company Number: NL-TEVA-2019-NL-1073760

PATIENT
  Sex: Female

DRUGS (1)
  1. BOSENTAN TEVA TABLET FILMOMHULD 125 MG (60ST) [Suspect]
     Active Substance: BOSENTAN
     Indication: SKIN ULCER
     Dosage: 250 MILLIGRAM DAILY; CURRENT PRESCRIPTION PERIOD: 01-MAY-2019 TO 01-APR-2020
     Route: 048

REACTIONS (4)
  - Nausea [Unknown]
  - Haematemesis [Unknown]
  - Abdominal pain upper [Unknown]
  - Haemoptysis [Unknown]
